FAERS Safety Report 7434260-X (Version None)
Quarter: 2011Q2

REPORT INFORMATION
  Report Type: 
  Country: None (occurrence: None)
  Receive Date: 20110425
  Receipt Date: 20110419
  Transmission Date: 20111010
  Serious: No
  Sender: FDA-Public Use
  Company Number: US-PFIZER INC-2011086207

PATIENT
  Sex: Female

DRUGS (1)
  1. EFFEXOR XR [Suspect]
     Indication: HOT FLUSH
     Dosage: UNK

REACTIONS (4)
  - IRRITABILITY [None]
  - AGGRESSION [None]
  - HOT FLUSH [None]
  - WITHDRAWAL SYNDROME [None]
